FAERS Safety Report 5249329-8 (Version None)
Quarter: 2007Q1

REPORT INFORMATION
  Report Type: 
  Country: None (occurrence: None)
  Receive Date: 20070223
  Receipt Date: 20070212
  Transmission Date: 20070707
  Serious: Yes (Death)
  Sender: FDA-Public Use
  Company Number: 2007-154423-NL

PATIENT
  Age: 16 Year
  Sex: Male

DRUGS (1)
  1. DEXAMETHASONE [Suspect]
     Dates: start: 20060201, end: 20060301

REACTIONS (3)
  - COMPLETED SUICIDE [None]
  - MOOD SWINGS [None]
  - VOMITING [None]
